FAERS Safety Report 19318073 (Version 1)
Quarter: 2021Q2

REPORT INFORMATION
  Report Type: Spontaneous
  Country: US (occurrence: US)
  Receive Date: 20210527
  Receipt Date: 20210527
  Transmission Date: 20210717
  Serious: Yes (Hospitalization)
  Sender: FDA-Public Use
  Company Number: US-TEVA-2021-US-1915068

PATIENT
  Age: 88 Year
  Sex: Female

DRUGS (1)
  1. CLOBETASOL [Suspect]
     Active Substance: CLOBETASOL
     Indication: DERMATITIS
     Dosage: FOR OVER A YEAR; 0.05%
     Route: 061

REACTIONS (3)
  - Application site atrophy [Unknown]
  - Skin atrophy [Unknown]
  - Secondary adrenocortical insufficiency [Recovered/Resolved]
